FAERS Safety Report 9291170 (Version 1)
Quarter: 2013Q2

REPORT INFORMATION
  Report Type: Spontaneous
  Country: FR (occurrence: FR)
  Receive Date: 20130515
  Receipt Date: 20130515
  Transmission Date: 20140414
  Serious: Yes (Death)
  Sender: FDA-Public Use
  Company Number: FR-PFIZER INC-2013149437

PATIENT
  Sex: Female

DRUGS (12)
  1. IBUPROFEN [Suspect]
     Dosage: DOSAGE FORM: UNSPECIFIED
     Route: 065
  2. ARESTAL [Suspect]
     Dosage: UNK
     Route: 065
  3. NICOTINE [Suspect]
     Dosage: DOSAGE FORM: UNSPECIFIED
     Route: 065
  4. ALMOGRAN [Suspect]
     Dosage: DOSAGE FORM: UNSPECIFIED
     Route: 065
  5. PARACETAMOL [Suspect]
     Dosage: DOSAGE FORM: UNSPECIFIED
     Route: 065
  6. CITALOPRAM [Suspect]
     Dosage: DOSAGE FORM: UNSPECIFIED, TOXIC DOSE
     Route: 065
  7. LORMETAZEPAM [Suspect]
     Dosage: DOSAGE FORM: UNSPECIFIED
     Route: 065
  8. THEOBROMINE [Suspect]
     Dosage: DOSAGE FORM: UNSPECIFIED
     Route: 065
  9. THEOPHYLLINE [Suspect]
     Dosage: DOSAGE FORM: UNSPECIFIED
     Route: 065
  10. BROMAZEPAM [Suspect]
     Dosage: DOSAGE FORM: UNSPECIFIED
     Route: 065
  11. CODEINE [Suspect]
     Dosage: DOSAGE FORM: UNSPECIFIED, TOXIC DOSES
     Route: 065
  12. CAFFEINE [Suspect]
     Dosage: DOSAGE FORM: UNSPECIFIED
     Route: 065

REACTIONS (1)
  - Death [Fatal]
